FAERS Safety Report 5010021-6 (Version None)
Quarter: 2006Q2

REPORT INFORMATION
  Report Type: 
  Country: None (occurrence: None)
  Receive Date: 20060511
  Receipt Date: 20060508
  Transmission Date: 20061013
  Serious: No
  Sender: FDA-Public Use
  Company Number: 200609868

PATIENT
  Age: 29 Year
  Sex: Female

DRUGS (1)
  1. RHOPHYLAC (ANTI-D IMMUNOGLOBULIN) [Suspect]
     Indication: CORD BLOOD TRANSPLANT THERAPY
     Dosage: 3000 IU DAILY IV
     Route: 042
     Dates: start: 20060225, end: 20060225

REACTIONS (10)
  - BLOOD PRESSURE DECREASED [None]
  - BLOOD PRESSURE INCREASED [None]
  - BODY TEMPERATURE INCREASED [None]
  - CHILLS [None]
  - CYANOSIS [None]
  - FEELING COLD [None]
  - HYPERSENSITIVITY [None]
  - RASH ERYTHEMATOUS [None]
  - RASH MACULAR [None]
  - TACHYCARDIA [None]
